FAERS Safety Report 10407654 (Version 1)
Quarter: 2014Q3

REPORT INFORMATION
  Report Type: Report from Study
  Country: BR (occurrence: BR)
  Receive Date: 20140825
  Receipt Date: 20140825
  Transmission Date: 20150326
  Serious: Yes (Death, Other)
  Sender: FDA-Public Use
  Company Number: PHHY2014BR105866

PATIENT
  Sex: Female

DRUGS (2)
  1. DIOVAN [Suspect]
     Active Substance: VALSARTAN
     Dosage: 320 MG, UNK
  2. DIOVAN HCT [Suspect]
     Active Substance: HYDROCHLOROTHIAZIDE\VALSARTAN
     Dosage: 320/12.5 MG, UNK

REACTIONS (6)
  - Liver disorder [Unknown]
  - Ocular discomfort [Unknown]
  - Neoplasm malignant [Unknown]
  - Hypertension [Fatal]
  - Diabetes mellitus [Unknown]
  - Infarction [Fatal]
